FAERS Safety Report 6012976-X (Version None)
Quarter: 2008Q4

REPORT INFORMATION
  Report Type: 
  Country: None (occurrence: None)
  Receive Date: 20081219
  Receipt Date: 20081210
  Transmission Date: 20090506
  Serious: Yes (Hospitalization)
  Sender: FDA-Public Use
  Company Number: US-WYE-H07161608

PATIENT
  Sex: Female
  Weight: 68.55 kg

DRUGS (2)
  1. PRISTIQ [Suspect]
     Indication: DEPRESSION
     Dates: start: 20081023, end: 20081201
  2. PROMETRIUM [Interacting]
     Dosage: 100 MG DAILY ON DAYS 16 THROUGH 25 OF HER CYCLE
     Route: 065
     Dates: start: 20080701

REACTIONS (2)
  - DRUG INTERACTION [None]
  - LOSS OF CONSCIOUSNESS [None]
